FAERS Safety Report 12985066 (Version 1)
Quarter: 2016Q4

REPORT INFORMATION
  Report Type: Spontaneous
  Country: US (occurrence: US)
  Receive Date: 20161129
  Receipt Date: 20161129
  Transmission Date: 20170207
  Serious: No
  Sender: FDA-Public Use
  Company Number: US-TEIKOKU PHARMA USA-TPU2016-00808

PATIENT
  Sex: Female

DRUGS (1)
  1. LIDOCAINE PATCH [Suspect]
     Active Substance: LIDOCAINE
     Indication: PAIN IN EXTREMITY
     Dosage: ONE PATCH CUT IN HALF 12 HOURS ON AND 12 HOURS OFF ON FOOT AND ANKLE
     Route: 061
     Dates: start: 201609

REACTIONS (1)
  - Pain [Not Recovered/Not Resolved]
